FAERS Safety Report 19475925 (Version 1)
Quarter: 2021Q2

REPORT INFORMATION
  Report Type: Spontaneous
  Country: CZ (occurrence: CZ)
  Receive Date: 20210630
  Receipt Date: 20210630
  Transmission Date: 20210717
  Serious: Yes (Hospitalization)
  Sender: FDA-Public Use
  Company Number: CZ-TEVA-2021-CZ-1926899

PATIENT
  Age: 60 Year
  Sex: Male
  Weight: 83 kg

DRUGS (4)
  1. ALOPURINOL [Suspect]
     Active Substance: ALLOPURINOL
     Dosage: UNKNOWN
  2. CARAMLO [Concomitant]
     Active Substance: AMLODIPINE BESYLATE\CANDESARTAN CILEXETIL
  3. BISEPTOL [Suspect]
     Active Substance: SULFAMETHOXAZOLE\TRIMETHOPRIM
     Indication: PROPHYLAXIS
     Dosage: 480 MILLIGRAM DAILY; 0?0?1
     Route: 048
     Dates: start: 20210410, end: 20210421
  4. BENDAMUSTIN [Suspect]
     Active Substance: BENDAMUSTINE
     Indication: PROPHYLAXIS
     Dosage: UNKNOWN

REACTIONS (1)
  - Dermatitis allergic [Recovered/Resolved]

NARRATIVE: CASE EVENT DATE: 20210421
